FAERS Safety Report 5504993-0 (Version None)
Quarter: 2007Q4

REPORT INFORMATION
  Report Type: 
  Country: None (occurrence: None)
  Receive Date: 20071031
  Receipt Date: 20071031
  Transmission Date: 20080405
  Serious: No
  Sender: FDA-Public Use
  Company Number: None

PATIENT
  Sex: Female
  Weight: 65.7716 kg

DRUGS (1)
  1. AVELOX [Suspect]
     Indication: SINUSITIS
     Dosage: 400 MG 1 PER DAY PO
     Route: 048
     Dates: start: 20071025, end: 20071029

REACTIONS (4)
  - EAR DISCOMFORT [None]
  - EAR PAIN [None]
  - HEADACHE [None]
  - TINNITUS [None]
